FAERS Safety Report 4646051-3 (Version None)
Quarter: 2005Q2

REPORT INFORMATION
  Report Type: 
  Country: None (occurrence: None)
  Receive Date: 20050425
  Receipt Date: 20050412
  Transmission Date: 20051028
  Serious: Yes (Death)
  Sender: FDA-Public Use
  Company Number: HQWYE350324MAR05

PATIENT
  Age: 86 Year
  Sex: Male

DRUGS (1)
  1. CORDARONE [Suspect]
     Dosage: 200 MG 1X PER 1 DAY ORAL
     Route: 048
     Dates: start: 19990101

REACTIONS (2)
  - ACUTE LEFT VENTRICULAR FAILURE [None]
  - DRUG LEVEL DECREASED [None]
